FAERS Safety Report 15222196 (Version 1)
Quarter: 2018Q3

REPORT INFORMATION
  Report Type: Spontaneous
  Country: ES (occurrence: ES)
  Receive Date: 20180731
  Receipt Date: 20180731
  Transmission Date: 20181010
  Serious: Yes (Other)
  Sender: FDA-Public Use
  Company Number: PHHY2018ES060146

PATIENT
  Age: 50 Year
  Sex: Female

DRUGS (2)
  1. PEMETREXED. [Suspect]
     Active Substance: PEMETREXED
     Indication: LUNG ADENOCARCINOMA STAGE IV
     Dosage: UNK
     Route: 065
  2. ZOLEDRONIC ACID [Suspect]
     Active Substance: ZOLEDRONIC ACID
     Indication: LUNG ADENOCARCINOMA STAGE IV
     Dosage: UNK
     Route: 065

REACTIONS (1)
  - Nephrogenic diabetes insipidus [Recovered/Resolved]

NARRATIVE: CASE EVENT DATE: 201404
